FAERS Safety Report 25777942 (Version 1)
Quarter: 2025Q3

REPORT INFORMATION
  Report Type: Spontaneous
  Country: US (occurrence: US)
  Receive Date: 20250909
  Receipt Date: 20250909
  Transmission Date: 20251020
  Serious: Yes (Other)
  Sender: INTRA-CELLULAR THERAPIES
  Company Number: US-INTRA-CELLULAR THERAPIES, INC.-2025ICT01727

PATIENT
  Age: 30 Year
  Sex: Female

DRUGS (5)
  1. CAPLYTA [Suspect]
     Active Substance: LUMATEPERONE
     Indication: Bipolar disorder
     Dosage: 42 MG, 1X/DAY
     Route: 048
     Dates: start: 20250319, end: 20250506
  2. CAPLYTA [Suspect]
     Active Substance: LUMATEPERONE
     Dosage: 42 MG, 1X/DAY
     Route: 048
     Dates: start: 2025, end: 20250617
  3. INGREZZA [Suspect]
     Active Substance: VALBENAZINE DITOSYLATE
     Dosage: 40 MG, 1X/DAY
     Dates: end: 20250617
  4. CANNABIS SATIVA SUBSP. INDICA TOP [Concomitant]
     Active Substance: CANNABIS SATIVA SUBSP. INDICA TOP
  5. HYDROXYZINE [Concomitant]
     Active Substance: HYDROXYZINE HYDROCHLORIDE

REACTIONS (3)
  - Loss of consciousness [Recovering/Resolving]
  - Palpitations [Recovering/Resolving]
  - Formication [Recovering/Resolving]

NARRATIVE: CASE EVENT DATE: 20250101
